FAERS Safety Report 10163846 (Version 1)
Quarter: 2014Q2

REPORT INFORMATION
  Report Type: Report from Study
  Country: CZ (occurrence: CZ)
  Receive Date: 20140509
  Receipt Date: 20140509
  Transmission Date: 20141212
  Serious: Yes (Hospitalization)
  Sender: FDA-Public Use
  Company Number: CZ-ONYX-2014-1001

PATIENT
  Age: 76 Year
  Sex: Male
  Weight: 75 kg

DRUGS (15)
  1. CARFILZOMIB [Suspect]
     Indication: PLASMA CELL MYELOMA
     Route: 042
     Dates: start: 20131209, end: 20131210
  2. CARFILZOMIB [Suspect]
     Route: 042
     Dates: start: 20131216, end: 20140107
  3. CARFILZOMIB [Suspect]
     Route: 042
     Dates: start: 20140120
  4. MELPHALAN [Suspect]
     Indication: PLASMA CELL MYELOMA
     Route: 048
     Dates: start: 20140303
  5. PREDNISONE [Suspect]
     Indication: PLASMA CELL MYELOMA
     Route: 048
     Dates: start: 20140303
  6. HERPESIN [Concomitant]
     Indication: ANTIVIRAL PROPHYLAXIS
     Route: 048
     Dates: start: 20131209
  7. FRAXIPARINE [Concomitant]
     Indication: THROMBOSIS PROPHYLAXIS
     Route: 058
     Dates: start: 20131001
  8. APO-ZOLEDRONIC ACID [Concomitant]
     Indication: OSTEOPOROSIS PROPHYLAXIS
     Route: 042
     Dates: start: 20131230
  9. MILURIT [Concomitant]
     Indication: PROPHYLAXIS
     Route: 048
     Dates: start: 20131209, end: 20140414
  10. DEGAN [Concomitant]
     Indication: DECREASED APPETITE
     Route: 048
     Dates: start: 20140414
  11. LOSEPRAZOL [Concomitant]
     Indication: PROPHYLAXIS AGAINST GASTROINTESTINAL ULCER
     Route: 048
     Dates: start: 201309
  12. LOSEPRAZOL [Concomitant]
     Indication: DECREASED APPETITE
  13. NOVALGIN [Concomitant]
     Indication: BACK PAIN
     Route: 048
     Dates: start: 20140217
  14. PRESTARIUM NEO [Concomitant]
     Indication: HYPERTENSION
     Route: 048
     Dates: start: 20140505
  15. FURON [Concomitant]
     Indication: HYPERTENSION
     Route: 048
     Dates: start: 20140505

REACTIONS (1)
  - Syncope [Recovered/Resolved]
